FAERS Safety Report 16983342 (Version 2)
Quarter: 2020Q4

REPORT INFORMATION
  Report Type: Report from Study
  Country: JP (occurrence: JP)
  Receive Date: 20191101
  Receipt Date: 20201204
  Transmission Date: 20210113
  Serious: Yes (Hospitalization, Other)
  Sender: FDA-Public Use
  Company Number: JP-009507513-1910JPN003873J

PATIENT
  Age: 55 Year
  Sex: Male
  Weight: 66 kg

DRUGS (6)
  1. VALACYCLOVIR HYDROCHLORIDE. [Concomitant]
     Active Substance: VALACYCLOVIR HYDROCHLORIDE
     Indication: PROPHYLAXIS
     Dosage: 250MILLIGRAM TO 500 MILLIGRAM, TWICE A DAY
     Route: 048
     Dates: end: 20181024
  2. CELLCEPT [Concomitant]
     Active Substance: MYCOPHENOLATE MOFETIL\MYCOPHENOLATE MOFETIL HYDROCHLORIDE
     Indication: PROPHYLAXIS
     Dosage: 500-2000MG/DAY
     Route: 048
     Dates: start: 20180923, end: 20181024
  3. PROGRAF [Concomitant]
     Active Substance: TACROLIMUS
     Indication: PROPHYLAXIS
     Dosage: 1.8-2.1MG, DAILY
     Route: 051
     Dates: start: 20180923, end: 20181016
  4. ACICLOVIR [Concomitant]
     Active Substance: ACYCLOVIR
     Indication: PROPHYLAXIS
     Dosage: 250 MILLIGRAM, TWICE A DAY
     Route: 051
     Dates: start: 20180925, end: 20181010
  5. LETERMOVIR [Suspect]
     Active Substance: LETERMOVIR
     Indication: ANTIVIRAL PROPHYLAXIS
     Dosage: 480 MILLIGRAM, DAILY
     Route: 041
     Dates: start: 20180918, end: 20181016
  6. PREVYMIS [Suspect]
     Active Substance: LETERMOVIR
     Indication: ANTIVIRAL PROPHYLAXIS
     Dosage: 480 MILLIGRAM, DAILY
     Route: 048
     Dates: start: 20181017, end: 20181224

REACTIONS (5)
  - Graft versus host disease in skin [Recovered/Resolved]
  - Cytomegalovirus infection [Unknown]
  - Acute graft versus host disease in skin [Recovering/Resolving]
  - Adverse event [Unknown]
  - Acute graft versus host disease in intestine [Recovering/Resolving]

NARRATIVE: CASE EVENT DATE: 2018
